FAERS Safety Report 6568787-X (Version None)
Quarter: 2010Q1

REPORT INFORMATION
  Report Type: 
  Country: None (occurrence: None)
  Receive Date: 20100128
  Receipt Date: 20100113
  Transmission Date: 20100710
  Serious: Yes (Hospitalization)
  Sender: FDA-Public Use
  Company Number: 2009AC000236

PATIENT
  Age: 72 Year
  Sex: Male

DRUGS (52)
  1. DIGOXIN [Suspect]
     Dosage: .25 MG; QD; PO
     Route: 048
  2. DIGOXIN [Suspect]
     Dosage: 0.125 MG; QD; PO
     Route: 048
     Dates: start: 20031201, end: 20071201
  3. LEXAPRO [Concomitant]
  4. PLAVIX [Concomitant]
  5. ARICEPT [Concomitant]
  6. SEROQUEL [Concomitant]
  7. ALBUTEROL [Concomitant]
  8. REQUIP [Concomitant]
  9. FLOMAX [Concomitant]
  10. SPIRIVA [Concomitant]
  11. ALPRAZOLAM [Concomitant]
  12. SINGULAIR [Concomitant]
  13. XANAX [Concomitant]
  14. FLOMAX [Concomitant]
  15. COREG [Concomitant]
  16. POTASSIUM CHLORIDE [Concomitant]
  17. DILTIAZEM HCL [Concomitant]
  18. FUROSEMIDE [Concomitant]
  19. ADVAIR DISKUS 100/50 [Concomitant]
  20. SPIRONOLACTONE [Concomitant]
  21. CELEXA [Concomitant]
  22. ALDACTONE [Concomitant]
  23. VITAMIN C [Concomitant]
  24. VITAMIN B-COMPLEX WITH VIT C [Concomitant]
  25. LASIX [Concomitant]
  26. ZAROXOLYN [Concomitant]
  27. SPIRIVA [Concomitant]
  28. CALCIUM 600 + D [Concomitant]
  29. ADVAIR DISKUS 100/50 [Concomitant]
  30. ARICEPT [Concomitant]
  31. SINGULAIR [Concomitant]
  32. ALBUTEROL SULFATE AUTOHALER [Concomitant]
  33. SEROQUEL [Concomitant]
  34. ALBUTEROL [Concomitant]
  35. CARVEDILOL [Concomitant]
  36. TOPROL-XL [Concomitant]
  37. COUMADIN [Concomitant]
  38. ALPRAZOLAM [Concomitant]
  39. ARICEPT [Concomitant]
  40. CITALOPRAM [Concomitant]
  41. COREG [Concomitant]
  42. FLOMAX [Concomitant]
  43. LASIX [Concomitant]
  44. PLAVIX [Concomitant]
  45. POTASSIUM [Concomitant]
  46. SEROQUEL [Concomitant]
  47. SINGULAIR [Concomitant]
  48. SPIRONOLACTONE [Concomitant]
  49. ZAROXOLYN [Concomitant]
  50. CARDIZEM [Concomitant]
  51. AMIODARONE HCL [Concomitant]
  52. IRON [Concomitant]

REACTIONS (37)
  - ACTIVITIES OF DAILY LIVING IMPAIRED [None]
  - ANXIETY [None]
  - ASTHENIA [None]
  - ATRIAL FIBRILLATION [None]
  - ATRIAL TACHYCARDIA [None]
  - BLOOD POTASSIUM DECREASED [None]
  - BRADYCARDIA [None]
  - BRONCHITIS CHRONIC [None]
  - CARDIAC FAILURE [None]
  - CARDIOMEGALY [None]
  - CHRONIC OBSTRUCTIVE PULMONARY DISEASE [None]
  - CONDITION AGGRAVATED [None]
  - DECREASED APPETITE [None]
  - DIASTOLIC DYSFUNCTION [None]
  - DIVERTICULUM INTESTINAL HAEMORRHAGIC [None]
  - DIZZINESS [None]
  - DRUG HYPERSENSITIVITY [None]
  - ECONOMIC PROBLEM [None]
  - FAILURE TO THRIVE [None]
  - FATIGUE [None]
  - HYPOXIA [None]
  - INCREASED TENDENCY TO BRUISE [None]
  - INJURY [None]
  - LEFT VENTRICULAR HYPERTROPHY [None]
  - OEDEMA PERIPHERAL [None]
  - OSTEOARTHRITIS [None]
  - PAIN [None]
  - PERIODIC LIMB MOVEMENT DISORDER [None]
  - PLEURAL EFFUSION [None]
  - POST PROCEDURAL COMPLICATION [None]
  - PRESYNCOPE [None]
  - PULMONARY OEDEMA [None]
  - RESTLESS LEGS SYNDROME [None]
  - RESTRICTIVE CARDIOMYOPATHY [None]
  - SOCIAL PROBLEM [None]
  - THERAPEUTIC AGENT TOXICITY [None]
  - WEIGHT INCREASED [None]
